FAERS Safety Report 7293153-1 (Version None)
Quarter: 2011Q1

REPORT INFORMATION
  Report Type: 
  Country: None (occurrence: None)
  Receive Date: 20110203
  Receipt Date: 20110119
  Transmission Date: 20110831
  Serious: Yes (Other)
  Sender: FDA-Public Use
  Company Number: 2011SP002898

PATIENT
  Age: 27 Year
  Sex: Female
  Weight: 65 kg

DRUGS (3)
  1. AMITRIPTILINE (AMITRIPTYLINE) [Suspect]
     Indication: NERVOUS SYSTEM DISORDER
     Dosage: PO
     Route: 048
     Dates: start: 20100701
  2. CARBAMAZEPINE [Suspect]
     Indication: NERVOUS SYSTEM DISORDER
     Dosage: PO
     Route: 048
     Dates: start: 20100701
  3. CERAZETTE (DESOGESTREL /00754001/) [Suspect]
     Indication: CONTRACEPTION
     Dosage: PO
     Route: 048
     Dates: start: 20110116

REACTIONS (5)
  - SWELLING [None]
  - OEDEMA PERIPHERAL [None]
  - DRUG INTERACTION [None]
  - SWELLING FACE [None]
  - PAIN [None]
